FAERS Safety Report 14248574 (Version 1)
Quarter: 2017Q4

REPORT INFORMATION
  Report Type: Spontaneous
  Country: CA (occurrence: CA)
  Receive Date: 20171202
  Receipt Date: 20171202
  Transmission Date: 20180321
  Serious: Yes (Life-Threatening, Hospitalization, Disabling, Congenital Anomaly, Other)
  Sender: FDA-Public Use
  Company Number: None

PATIENT
  Sex: Female
  Weight: 83.25 kg

DRUGS (1)
  1. JUBLIA [Suspect]
     Active Substance: EFINACONAZOLE
     Dosage: ?          OTHER ROUTE:APPLY TO TOE NAIL?
     Route: 061

REACTIONS (3)
  - Congenital anomaly [None]
  - Maternal exposure during pregnancy [None]
  - Univentricular heart [None]

NARRATIVE: CASE EVENT DATE: 20171101
